FAERS Safety Report 5689994-4 (Version None)
Quarter: 2008Q2

REPORT INFORMATION
  Report Type: 
  Country: None (occurrence: None)
  Receive Date: 20080401
  Receipt Date: 20071003
  Transmission Date: 20081010
  Serious: No
  Sender: FDA-Public Use
  Company Number: A0685917A

PATIENT
  Sex: Male

DRUGS (3)
  1. FLOVENT [Suspect]
     Indication: ASTHMA
     Dosage: 2PUFF TWICE PER DAY
     Route: 055
     Dates: start: 20070301
  2. ZYRTEC [Concomitant]
  3. ALBUTEROL [Concomitant]

REACTIONS (2)
  - COUGH [None]
  - DYSPNOEA EXERTIONAL [None]
